FAERS Safety Report 5226346-5 (Version None)
Quarter: 2007Q1

REPORT INFORMATION
  Report Type: 
  Country: None (occurrence: None)
  Receive Date: 20070201
  Receipt Date: 20070122
  Transmission Date: 20070707
  Serious: Yes (Hospitalization)
  Sender: FDA-Public Use
  Company Number: PHBS2006AT02458

PATIENT
  Age: 65 Year
  Sex: Female

DRUGS (1)
  1. ELIDEL [Suspect]
     Indication: DERMATITIS
     Dosage: UNK, UNK
     Route: 061

REACTIONS (1)
  - B-CELL SMALL LYMPHOCYTIC LYMPHOMA [None]
